FAERS Safety Report 7494035-2 (Version None)
Quarter: 2011Q2

REPORT INFORMATION
  Report Type: 
  Country: None (occurrence: None)
  Receive Date: 20110520
  Receipt Date: 20110512
  Transmission Date: 20111010
  Serious: Yes (Other)
  Sender: FDA-Public Use
  Company Number: AU-ABBOTT-11P-008-0725531-00

PATIENT
  Age: 53 Year
  Sex: Female
  Weight: 72 kg

DRUGS (10)
  1. TELFAST [Concomitant]
     Indication: SINUSITIS
     Dates: start: 20101020
  2. HUMIRA [Suspect]
     Indication: SPONDYLITIS
     Route: 058
     Dates: start: 20101005, end: 20110405
  3. DOXYCYCLINE [Concomitant]
     Indication: HERPES ZOSTER
     Dates: start: 20110111, end: 20110118
  4. FAMVIR [Concomitant]
     Indication: HERPES ZOSTER
     Dates: start: 20110111, end: 20110118
  5. PANADOL [Concomitant]
     Indication: JOINT SWELLING
  6. SERETIDE [Concomitant]
     Indication: ASTHMA
     Dates: start: 20060101
  7. PANADOL [Concomitant]
     Indication: PAIN
     Dates: start: 20101218
  8. THYROXIN [Concomitant]
     Indication: HYPOTHYROIDISM
     Dates: start: 20050101
  9. REMIFEMIN [Concomitant]
     Indication: MENOPAUSE
     Dates: start: 20080101, end: 20101101
  10. NEXIUM [Concomitant]
     Indication: GASTROOESOPHAGEAL REFLUX DISEASE
     Dates: start: 20050101

REACTIONS (1)
  - VASCULITIS CEREBRAL [None]
